FAERS Safety Report 7980673-7 (Version None)
Quarter: 2011Q4

REPORT INFORMATION
  Report Type: 
  Country: None (occurrence: None)
  Receive Date: 20111214
  Receipt Date: 20111205
  Transmission Date: 20120403
  Serious: Yes (Hospitalization)
  Sender: FDA-Public Use
  Company Number: US-ASTRAZENECA-2011SE14728

PATIENT
  Age: 77 Year
  Sex: Female

DRUGS (2)
  1. NEXIUM [Suspect]
     Indication: ULCER
     Route: 048
  2. PRILOSEC [Suspect]
     Route: 048

REACTIONS (3)
  - ULCER HAEMORRHAGE [None]
  - DRUG DOSE OMISSION [None]
  - DRUG INEFFECTIVE [None]
